FAERS Safety Report 21004279 (Version 1)
Quarter: 2022Q2

REPORT INFORMATION
  Report Type: Spontaneous
  Country: US (occurrence: US)
  Receive Date: 20220624
  Receipt Date: 20220624
  Transmission Date: 20220721
  Serious: No
  Sender: FDA-Public Use
  Company Number: US-AVEO ONCOLOGY-2022-AVEO-US000078

PATIENT

DRUGS (20)
  1. FOTIVDA [Suspect]
     Active Substance: TIVOZANIB HYDROCHLORIDE
     Indication: Renal cell carcinoma
     Dosage: 1.34 MG, DAILY CAPSULE FOR 3 WEEKS, THEN 1 WEEK OFF
     Route: 048
     Dates: start: 20220225
  2. FOTIVDA [Suspect]
     Active Substance: TIVOZANIB HYDROCHLORIDE
     Dosage: 0.89 1 TABLET DAILY FOR 3 WEEKS ON, 1 WEEK OFF
     Route: 048
     Dates: start: 20220225, end: 20220316
  3. VITAMIN C [Concomitant]
     Active Substance: ASCORBIC ACID
     Dosage: 500 MG
  4. ASPIRIN [Concomitant]
     Active Substance: ASPIRIN
     Dosage: 81 MG
  5. CETIRIZINE [Concomitant]
     Active Substance: CETIRIZINE HYDROCHLORIDE
     Dosage: 10 MG
  6. VITAMIN D [Concomitant]
     Active Substance: VITAMIN D NOS
     Dosage: 1000 U
  7. LOMOTIL [Concomitant]
     Active Substance: ATROPINE SULFATE\DIPHENOXYLATE HYDROCHLORIDE
     Dosage: 2.5-.025 MG
  8. FLONASE [Concomitant]
     Active Substance: FLUTICASONE PROPIONATE
     Dosage: 20 IU
  9. ADALAT [Concomitant]
     Active Substance: NIFEDIPINE
     Dosage: 30 MG
  10. FLOMAX [Concomitant]
     Active Substance: TAMSULOSIN HYDROCHLORIDE
     Dosage: 0.4 MG
  11. VITAMIN B [Concomitant]
     Active Substance: VITAMIN B
  12. CARVEDILOL [Concomitant]
     Active Substance: CARVEDILOL
     Dosage: 6.25 MG
  13. AMBIEN [Concomitant]
     Active Substance: ZOLPIDEM TARTRATE
     Dosage: 5 MG
  14. CRESTOR [Concomitant]
     Active Substance: ROSUVASTATIN CALCIUM
     Dosage: 20 MG
  15. PLAVIX [Concomitant]
     Active Substance: CLOPIDOGREL BISULFATE
     Dosage: 75 MG
  16. VESICARE [Concomitant]
     Active Substance: SOLIFENACIN SUCCINATE
     Dosage: 5 MG
  17. HYDROXYZINE [Concomitant]
     Active Substance: HYDROXYZINE HYDROCHLORIDE
     Dosage: 25 MG
  18. NITROGLYCERIN [Concomitant]
     Active Substance: NITROGLYCERIN
     Dosage: 0.6 MG
  19. BISACODYL [Concomitant]
     Active Substance: BISACODYL
     Dosage: 10 MG
  20. HUMALOG [Concomitant]
     Active Substance: INSULIN LISPRO

REACTIONS (6)
  - Diarrhoea [Recovering/Resolving]
  - Blood pressure increased [Unknown]
  - Abdominal pain upper [Recovering/Resolving]
  - Blood creatinine increased [Unknown]
  - Therapy interrupted [Unknown]
  - Pancreatitis [Unknown]

NARRATIVE: CASE EVENT DATE: 20220325
